FAERS Safety Report 25163252 (Version 2)
Quarter: 2025Q2

REPORT INFORMATION
  Report Type: Report from Study
  Country: JP (occurrence: JP)
  Receive Date: 20250404
  Receipt Date: 20250417
  Transmission Date: 20250717
  Serious: Yes (Hospitalization)
  Sender: EISAI
  Company Number: JP-Eisai-EC-2025-187011

PATIENT
  Age: 85 Year
  Sex: Male

DRUGS (11)
  1. LENVATINIB [Suspect]
     Active Substance: LENVATINIB
     Indication: Skin angiosarcoma
     Dates: start: 20250314, end: 20250324
  2. LENVATINIB [Suspect]
     Active Substance: LENVATINIB
     Dates: start: 20250331, end: 20250402
  3. PEMBROLIZUMAB [Suspect]
     Active Substance: PEMBROLIZUMAB
     Indication: Skin angiosarcoma
     Dates: start: 20250314
  4. EDOXABAN TOSYLATE [Concomitant]
     Active Substance: EDOXABAN TOSYLATE
  5. EFONIDIPINE HYDROCHLORIDE ETHANOLATE [Concomitant]
  6. ACETAMINOPHEN [Concomitant]
     Active Substance: ACETAMINOPHEN
  7. AZILSARTAN KAMEDOXOMIL [Concomitant]
     Active Substance: AZILSARTAN KAMEDOXOMIL
  8. FUROSEMIDE [Concomitant]
     Active Substance: FUROSEMIDE
  9. GENTAMICIN SULFATE [Concomitant]
     Active Substance: GENTAMICIN SULFATE
  10. HEPARINOID [Concomitant]
  11. WHITE PETROLATUM [Concomitant]
     Active Substance: PETROLATUM

REACTIONS (1)
  - Dehydration [Recovered/Resolved]

NARRATIVE: CASE EVENT DATE: 20250325
